FAERS Safety Report 5529068-6 (Version None)
Quarter: 2007Q4

REPORT INFORMATION
  Report Type: 
  Country: None (occurrence: None)
  Receive Date: 20071129
  Receipt Date: 20061026
  Transmission Date: 20080405
  Serious: No
  Sender: FDA-Public Use
  Company Number: A0625054A

PATIENT
  Age: 38 Year
  Sex: Male

DRUGS (3)
  1. WELLBUTRIN SR [Suspect]
     Dosage: 150MG PER DAY
     Route: 048
     Dates: start: 20061015
  2. SYNTHROID [Concomitant]
  3. ZOCOR [Concomitant]

REACTIONS (1)
  - RASH [None]
